FAERS Safety Report 8589395-5 (Version None)
Quarter: 2012Q3

REPORT INFORMATION
  Report Type: 
  Country: None (occurrence: None)
  Receive Date: 20120731
  Receipt Date: 20120718
  Transmission Date: 20120928
  Serious: Yes (Other)
  Sender: FDA-Public Use
  Company Number: 2012MA008973

PATIENT
  Sex: Female

DRUGS (1)
  1. FLUOXETINE HYDROCHLORIDE [Suspect]
     Indication: ANXIETY DISORDER
     Dosage: 30 MG;QD;PO
     Route: 048

REACTIONS (2)
  - MATERNAL DRUGS AFFECTING FOETUS [None]
  - FOETAL DEATH [None]
